FAERS Safety Report 23223491 (Version 9)
Quarter: 2025Q1

REPORT INFORMATION
  Report Type: Report from Study
  Country: US (occurrence: US)
  Receive Date: 20231123
  Receipt Date: 20250130
  Transmission Date: 20250409
  Serious: Yes (Other)
  Sender: ABBVIE
  Company Number: US-ABBVIE-4768919

PATIENT
  Age: 64 Year
  Sex: Female

DRUGS (5)
  1. SKYRIZI [Suspect]
     Active Substance: RISANKIZUMAB-RZAA
     Indication: Psoriasis
     Dosage: LAST ADMIN DATE: 2020, FORM STRENGTH: 150 MILLIGRAM
     Route: 058
     Dates: start: 20200421
  2. SKYRIZI [Suspect]
     Active Substance: RISANKIZUMAB-RZAA
     Route: 058
     Dates: start: 20201229
  3. SKYRIZI [Suspect]
     Active Substance: RISANKIZUMAB-RZAA
     Route: 058
     Dates: start: 20200814
  4. SKYRIZI [Suspect]
     Active Substance: RISANKIZUMAB-RZAA
     Route: 058
  5. SKYRIZI [Suspect]
     Active Substance: RISANKIZUMAB-RZAA
     Route: 058

REACTIONS (23)
  - Malignant neoplasm of eye [Not Recovered/Not Resolved]
  - Skin mass [Recovering/Resolving]
  - Dry skin [Not Recovered/Not Resolved]
  - Pruritus [Unknown]
  - Gastrointestinal disorder [Not Recovered/Not Resolved]
  - Scab [Not Recovered/Not Resolved]
  - Abdominal pain upper [Unknown]
  - Colitis [Not Recovered/Not Resolved]
  - Rash macular [Not Recovered/Not Resolved]
  - Dry skin [Recovered/Resolved]
  - Melanocytic naevus [Unknown]
  - Illness [Recovering/Resolving]
  - Ocular discomfort [Unknown]
  - Scratch [Not Recovered/Not Resolved]
  - Skin exfoliation [Not Recovered/Not Resolved]
  - Papule [Not Recovered/Not Resolved]
  - Liver disorder [Unknown]
  - Pruritus [Recovering/Resolving]
  - Vomiting [Unknown]
  - Skin exfoliation [Not Recovered/Not Resolved]
  - Contusion [Unknown]
  - Eye pruritus [Unknown]
  - Liver injury [Not Recovered/Not Resolved]

NARRATIVE: CASE EVENT DATE: 20230101
